FAERS Safety Report 11923018 (Version 1)
Quarter: 2016Q1

REPORT INFORMATION
  Report Type: Report from Study
  Country: CA (occurrence: CA)
  Receive Date: 20160117
  Receipt Date: 20160117
  Transmission Date: 20160526
  Serious: Yes (Death, Hospitalization)
  Sender: FDA-Public Use
  Company Number: CA-AMGEN-CANNI2016002916

PATIENT
  Age: 54 Year
  Sex: Male

DRUGS (3)
  1. DEXAMETHASONE. [Concomitant]
     Active Substance: DEXAMETHASONE
     Dosage: UNK
  2. CARFILZOMIB [Suspect]
     Active Substance: CARFILZOMIB
     Indication: PLASMA CELL MYELOMA
     Dosage: 119 MG, 2 TIMES/WK
     Route: 042
     Dates: start: 20151210, end: 20151219
  3. PAMIDRONATE [Concomitant]
     Active Substance: PAMIDRONATE DISODIUM
     Dosage: UNK

REACTIONS (2)
  - Disease progression [Fatal]
  - Pneumonia influenzal [Fatal]

NARRATIVE: CASE EVENT DATE: 20151210
